FAERS Safety Report 4736829-X (Version None)
Quarter: 2005Q3

REPORT INFORMATION
  Report Type: 
  Country: None (occurrence: None)
  Receive Date: 20050808
  Receipt Date: 20030501
  Transmission Date: 20060218
  Serious: Yes (Other)
  Sender: FDA-Public Use
  Company Number: 200314673GDDC

PATIENT
  Age: 82 Year
  Sex: Male

DRUGS (9)
  1. RIFAMPICIN [Suspect]
     Route: 048
     Dates: start: 20020917, end: 20021001
  2. RAMIPRIL [Suspect]
  3. FUROSEMIDE [Suspect]
  4. DILTIAZEM HCL [Suspect]
     Indication: ANGINA PECTORIS
     Route: 048
  5. DOXYCYCLINE [Suspect]
     Route: 048
     Dates: start: 20020917, end: 20021001
  6. WARFARIN [Suspect]
  7. SOTALOL HCL [Suspect]
  8. NICORANDIL [Suspect]
  9. DIGOXIN [Suspect]

REACTIONS (2)
  - CHEST PAIN [None]
  - TREATMENT NONCOMPLIANCE [None]
